FAERS Safety Report 23139010 (Version 2)
Quarter: 2023Q4

REPORT INFORMATION
  Report Type: Spontaneous
  Country: JP (occurrence: JP)
  Receive Date: 20231102
  Receipt Date: 20231117
  Transmission Date: 20240109
  Serious: Yes (Hospitalization)
  Sender: FDA-Public Use
  Company Number: JP-PFIZER INC-PV202300179328

PATIENT
  Age: 5 Year
  Sex: Female
  Weight: 16.2 kg

DRUGS (7)
  1. MEROPENEM [Suspect]
     Active Substance: MEROPENEM
     Indication: Nephritis bacterial
     Dosage: UNK, DURATION 3 WEEKS
     Route: 041
  2. MEROPENEM [Suspect]
     Active Substance: MEROPENEM
     Dosage: UNK, DURATION 3 WEEKS
     Route: 041
  3. MEROPENEM [Suspect]
     Active Substance: MEROPENEM
     Dosage: UNK
     Route: 041
  4. AMPICILLIN SODIUM [Suspect]
     Active Substance: AMPICILLIN SODIUM
     Dosage: UNK
     Route: 042
  5. GLYCERIN [Concomitant]
     Active Substance: GLYCERIN
     Dosage: UNK
  6. POLYETHYLENE GLYCOLS [Concomitant]
     Active Substance: POLYETHYLENE GLYCOLS
     Dosage: UNK
     Route: 048
  7. SODIUM PICOSULFATE [Concomitant]
     Active Substance: SODIUM PICOSULFATE
     Dosage: UNK
     Route: 048

REACTIONS (1)
  - Drug reaction with eosinophilia and systemic symptoms [Recovering/Resolving]
